FAERS Safety Report 22607048 (Version 1)
Quarter: 2023Q2

REPORT INFORMATION
  Report Type: Spontaneous
  Country: US (occurrence: US)
  Receive Date: 20230615
  Receipt Date: 20230615
  Transmission Date: 20230721
  Serious: No
  Sender: FDA-Public Use
  Company Number: US-INCYTE CORPORATION-2023IN002562

PATIENT

DRUGS (2)
  1. JAKAFI [Suspect]
     Active Substance: RUXOLITINIB
     Indication: Polycythaemia vera
     Dosage: 5 MILLIGRAM, TAKE 1 TABLET IN AM AND 2 TABLETS IN PM
     Route: 048
     Dates: start: 20211026
  2. JAKAFI [Suspect]
     Active Substance: RUXOLITINIB
     Dosage: 5MG IN THE  MORNING, 10MG IN THE  EVENING
     Route: 048
     Dates: start: 20211026

REACTIONS (3)
  - Hepatic enzyme increased [Recovering/Resolving]
  - Hypersensitivity [Unknown]
  - Fatigue [Unknown]
